FAERS Safety Report 9518563 (Version 1)
Quarter: 2013Q3

REPORT INFORMATION
  Report Type: Report from Study
  Country: US (occurrence: US)
  Receive Date: 20130912
  Receipt Date: 20130912
  Transmission Date: 20140515
  Serious: Yes (Other)
  Sender: FDA-Public Use
  Company Number: PHEH2013US018882

PATIENT
  Sex: Female

DRUGS (21)
  1. AFINITOR [Suspect]
     Indication: BREAST CANCER
  2. ALBUTEROL [Concomitant]
  3. AROMASIN [Concomitant]
  4. ATIVAN [Concomitant]
  5. CARAFATE [Concomitant]
  6. COZAAR [Concomitant]
  7. EMLA                               /00675501/ [Concomitant]
  8. FLUOXETINE [Concomitant]
  9. HYDROCODONE/ACETAMINOPHEN          /00607101/ [Concomitant]
  10. LIDOCAINE [Concomitant]
  11. LORAZEPAM [Concomitant]
  12. LOSARTAN [Concomitant]
  13. OMEPRAZOLE [Concomitant]
  14. ONDANSETRON [Concomitant]
  15. PHENERGAN                          /01851401/ [Concomitant]
  16. PRILOCAINE [Concomitant]
  17. PRILOSEC [Concomitant]
  18. PROMETHAZINE [Concomitant]
  19. PROZAC [Concomitant]
  20. SUCRALFATE [Concomitant]
  21. ZOFRAN [Concomitant]

REACTIONS (2)
  - Gait disturbance [Unknown]
  - Hearing impaired [Unknown]
